FAERS Safety Report 4393472-2 (Version None)
Quarter: 2004Q3

REPORT INFORMATION
  Report Type: 
  Country: None (occurrence: None)
  Receive Date: 20040709
  Receipt Date: 20040630
  Transmission Date: 20050211
  Serious: Yes (Death, Other)
  Sender: FDA-Public Use
  Company Number: PHBS2004JP08878

PATIENT
  Age: 29 Year
  Sex: Male

DRUGS (4)
  1. CYCLOSPORINE [Suspect]
     Indication: BONE MARROW TRANSPLANT
     Dosage: 3 MG/KG/D
     Route: 048
  2. METHOTREXATE [Suspect]
     Indication: BONE MARROW TRANSPLANT
     Dosage: 15 MG/D
     Route: 065
  3. METHOTREXATE [Suspect]
     Dosage: 10 MG/D
     Route: 065
  4. METHOTREXATE [Suspect]
     Dosage: 10 MG/D
     Route: 065

REACTIONS (4)
  - DEATH [None]
  - GRAFT VERSUS HOST DISEASE [None]
  - LEUKAEMIA RECURRENT [None]
  - SEPSIS [None]
